FAERS Safety Report 9742615 (Version 1)
Quarter: 2013Q4

REPORT INFORMATION
  Report Type: Spontaneous
  Country: US (occurrence: US)
  Receive Date: 20131210
  Receipt Date: 20131210
  Transmission Date: 20140711
  Serious: No
  Sender: FDA-Public Use
  Company Number: US-GILEAD-2009-0024763

PATIENT
  Sex: Male

DRUGS (12)
  1. LETAIRIS [Suspect]
     Indication: PULMONARY ARTERIAL HYPERTENSION
     Route: 048
     Dates: start: 20081029
  2. ATIVAN [Concomitant]
  3. FUROSEMIDE [Concomitant]
  4. ZOLPIDEM [Concomitant]
  5. FLOLAN [Concomitant]
  6. ALBUTEROL [Concomitant]
  7. PREDNISOLONE [Concomitant]
  8. DILANTIN [Concomitant]
  9. CELLCEPT [Concomitant]
  10. OXYCODONE [Concomitant]
  11. PROGRAF [Concomitant]
  12. CALCIUM [Concomitant]

REACTIONS (2)
  - Respiratory tract congestion [Not Recovered/Not Resolved]
  - Wheezing [Not Recovered/Not Resolved]
